FAERS Safety Report 21381123 (Version 1)
Quarter: 2022Q3

REPORT INFORMATION
  Report Type: Spontaneous
  Country: GB (occurrence: GB)
  Receive Date: 20220927
  Receipt Date: 20220927
  Transmission Date: 20221026
  Serious: Yes (Hospitalization)
  Sender: FDA-Public Use
  Company Number: GB-MYLANLABS-2022M1084160

PATIENT
  Age: 50 Year
  Sex: Male
  Weight: 112 kg

DRUGS (10)
  1. CLOZARIL [Suspect]
     Active Substance: CLOZAPINE
     Indication: Schizophrenia
     Dosage: 75 MILLIGRAM, AM
     Route: 048
     Dates: start: 20210426
  2. CLOZARIL [Suspect]
     Active Substance: CLOZAPINE
     Dosage: 200 MILLIGRAM, PM
     Route: 048
     Dates: start: 20210426
  3. BISOPROLOL [Concomitant]
     Active Substance: BISOPROLOL
     Dosage: 1.25 MILLIGRAM, QD
     Route: 065
     Dates: start: 20210601
  4. COCODAMOL [Concomitant]
     Active Substance: ACETAMINOPHEN\CODEINE PHOSPHATE
     Dosage: 2 DOSAGE FORM, TID, 30/500 - 2 TABLETS, THREE TIMES A DAY - LONG TERM
     Route: 065
  5. SCOPOLAMINE HYDROBROMIDE [Concomitant]
     Active Substance: SCOPOLAMINE HYDROBROMIDE
     Dosage: 300 MICROGRAM, TID, 300MICROGRAM THREE TIMES A DAY
     Route: 065
  6. OMEPRAZOLE [Concomitant]
     Active Substance: OMEPRAZOLE
     Indication: Gastrooesophageal reflux disease
     Dosage: 20 MILLIGRAM, QD, 20MG ONCE A DAY - AT LEAST SINCE APRIL 21
     Route: 065
     Dates: start: 202104
  7. LACTULOSE [Concomitant]
     Active Substance: LACTULOSE
     Dosage: 15 MILLILITER, BID, 15ML TWICE A DAY
     Route: 065
     Dates: start: 202110
  8. ALBUTEROL [Concomitant]
     Active Substance: ALBUTEROL
     Dosage: UNK UNK, PRN, INHALER AS NEEDED ?
     Dates: start: 20210723
  9. SENNA [Concomitant]
     Active Substance: SENNA LEAF\SENNOSIDES\SENNOSIDES A AND B
     Dosage: 15 MILLIGRAM, PRN, 15MG AS NEEDED
     Route: 065
     Dates: start: 20220711
  10. NICOTINE [Concomitant]
     Active Substance: NICOTINE
     Dosage: UNK, PRN, INHALATOR AS NEEDED

REACTIONS (8)
  - Malaise [Recovered/Resolved]
  - Lethargy [Recovered/Resolved]
  - Lymphocyte count decreased [Recovered/Resolved]
  - Lower respiratory tract infection [Recovering/Resolving]
  - C-reactive protein increased [Unknown]
  - Vomiting [Unknown]
  - White blood cell count decreased [Recovered/Resolved]
  - Nausea [Unknown]

NARRATIVE: CASE EVENT DATE: 20220802
